FAERS Safety Report 4417192-0 (Version None)
Quarter: 2004Q3

REPORT INFORMATION
  Report Type: 
  Country: None (occurrence: None)
  Receive Date: 20040802
  Receipt Date: 20040719
  Transmission Date: 20050211
  Serious: Yes (Death, Hospitalization)
  Sender: FDA-Public Use
  Company Number: 2004047305

PATIENT
  Age: 45 Year
  Sex: Female
  Weight: 105 kg

DRUGS (17)
  1. SILDENAFIL (SILDENAFIL) [Suspect]
     Indication: PULMONARY HYPERTENSION
     Dosage: SEE IMAGE
     Route: 048
     Dates: start: 20040102, end: 20040104
  2. SILDENAFIL (SILDENAFIL) [Suspect]
     Indication: PULMONARY HYPERTENSION
     Dosage: SEE IMAGE
     Route: 048
     Dates: start: 20040105, end: 20040622
  3. SILDENAFIL (SILDENAFIL) [Suspect]
     Indication: PULMONARY HYPERTENSION
     Dosage: SEE IMAGE
     Route: 048
     Dates: start: 20030901, end: 20040713
  4. AMLODIPINE BESYLATE [Concomitant]
  5. POTASSIUM (POTASSIUM) [Concomitant]
  6. PREDNISONE [Concomitant]
  7. LANSOPRAZOLE [Concomitant]
  8. FUROSEMIDE [Concomitant]
  9. COMBIVENT [Concomitant]
  10. SALBUTAMOL (SALBUTAMOL) [Concomitant]
  11. EPOPROSTENOL SODIUM (EPOPROSTENOL SODIUM) [Concomitant]
  12. LOMOTIL [Concomitant]
  13. LEVOFLOXACIN [Concomitant]
  14. HEPARIN [Concomitant]
  15. WARFARIN (WARFARIN) [Concomitant]
  16. INSULIN [Concomitant]
  17. METFORMIN HCL [Concomitant]

REACTIONS (10)
  - BRADYCARDIA [None]
  - CIRCULATORY COLLAPSE [None]
  - DRUG INTERACTION [None]
  - EXSANGUINATION [None]
  - HAEMOPTYSIS [None]
  - HEPARIN-INDUCED THROMBOCYTOPENIA [None]
  - PULMONARY HAEMORRHAGE [None]
  - RESUSCITATION [None]
  - RIGHT VENTRICULAR FAILURE [None]
  - UPPER RESPIRATORY TRACT INFECTION [None]
